FAERS Safety Report 8848649 (Version 1)
Quarter: 2012Q4

REPORT INFORMATION
  Report Type: Spontaneous
  Country: GB (occurrence: None)
  Receive Date: 20121015
  Receipt Date: 20121015
  Transmission Date: 20130627
  Serious: Yes (Other)
  Sender: FDA-Public Use
  Company Number: CL-446-2012

PATIENT
  Sex: Female

DRUGS (1)
  1. METRONIDAZOLE [Suspect]
     Indication: BACTERIAL VAGINOSIS

REACTIONS (2)
  - Type I hypersensitivity [None]
  - Drug hypersensitivity [None]
